FAERS Safety Report 11195053 (Version 1)
Quarter: 2015Q2

REPORT INFORMATION
  Report Type: Spontaneous
  Country: US (occurrence: None)
  Receive Date: 20150615
  Receipt Date: 20150615
  Transmission Date: 20150821
  Serious: Yes (Congenital Anomaly, Other)
  Sender: FDA-Public Use
  Company Number: A0543374B

PATIENT
  Sex: Male
  Weight: 1.7 kg

DRUGS (4)
  1. KALETRA [Concomitant]
     Active Substance: LOPINAVIR\RITONAVIR
  2. LAMIVUDINE (LAMIVUDINE) TABLET [Suspect]
     Active Substance: LAMIVUDINE
     Indication: HIV INFECTION
     Route: 064
  3. SPORANOX [Suspect]
     Active Substance: ITRACONAZOLE\SODIUM CHLORIDE
     Route: 064
  4. ZERIT (STAVUDINE) [Concomitant]

REACTIONS (10)
  - Congenital genital malformation [None]
  - Umbilical cord abnormality [None]
  - Maternal drugs affecting foetus [None]
  - Microcephaly [None]
  - Foetal growth restriction [None]
  - Brain scan abnormal [None]
  - Cerebral ventricle dilatation [None]
  - Micropenis [None]
  - Brain malformation [None]
  - Meconium stain [None]

NARRATIVE: CASE EVENT DATE: 20040831
